FAERS Safety Report 21966121 (Version 2)
Quarter: 2023Q1

REPORT INFORMATION
  Report Type: Spontaneous
  Country: US (occurrence: US)
  Receive Date: 20230208
  Receipt Date: 20230222
  Transmission Date: 20230418
  Serious: Yes (Life-Threatening, Hospitalization, Other)
  Sender: FDA-Public Use
  Company Number: None

PATIENT
  Age: 15 Year
  Sex: Male

DRUGS (2)
  1. IBUPROFEN [Suspect]
     Active Substance: IBUPROFEN
     Indication: Product used for unknown indication
     Dosage: 300 DOSAGE FORM (1 TOTAL) (120G OR 1,666MG/KG) TABLETS
     Route: 048
  2. BENADRYL [Suspect]
     Active Substance: DIPHENHYDRAMINE HYDROCHLORIDE
     Indication: Product used for unknown indication
     Dosage: 14 DOSAGE FORM (1 TOTAL)
     Route: 048

REACTIONS (11)
  - Acute respiratory distress syndrome [Recovering/Resolving]
  - Cardiac arrest [Recovered/Resolved]
  - Hyperkalaemia [Recovering/Resolving]
  - Hypocalcaemia [Recovering/Resolving]
  - Lactic acidosis [Recovering/Resolving]
  - Leukopenia [Recovering/Resolving]
  - Metabolic acidosis [Recovering/Resolving]
  - Renal failure [Recovering/Resolving]
  - Toxicity to various agents [Recovering/Resolving]
  - Overdose [Unknown]
  - Tachycardia [Recovering/Resolving]
